FAERS Safety Report 15485247 (Version 1)
Quarter: 2018Q4

REPORT INFORMATION
  Report Type: Spontaneous
  Country: US (occurrence: US)
  Receive Date: 20181010
  Receipt Date: 20181010
  Transmission Date: 20190205
  Serious: No
  Sender: FDA-Public Use
  Company Number: US-ROCHE-2101138

PATIENT
  Age: 79 Year
  Sex: Female

DRUGS (4)
  1. ESBRIET [Suspect]
     Active Substance: PIRFENIDONE
     Dosage: 3 TABLET WITH EACH MEAL 3 TIMES A DAY ;ONGOING: NO
     Route: 048
     Dates: start: 20180323, end: 201803
  2. ESBRIET [Suspect]
     Active Substance: PIRFENIDONE
     Indication: IDIOPATHIC PULMONARY FIBROSIS
     Dosage: 1 TABLET WITH EACH MEAL 3 TIMES A DAY ;ONGOING: NO
     Route: 048
     Dates: start: 20180308
  3. ESBRIET [Suspect]
     Active Substance: PIRFENIDONE
     Dosage: 2 TABLET WITH EACH MEAL 3 TIMES A DAY ;ONGOING: NO
     Route: 048
     Dates: start: 201803, end: 201803
  4. ESBRIET [Suspect]
     Active Substance: PIRFENIDONE
     Dosage: 1 TABLET WITH EACH MEAL 3 TIMES A DAY ;ONGOING: YES
     Route: 048
     Dates: start: 201803, end: 201803

REACTIONS (2)
  - Insomnia [Recovered/Resolved]
  - Diarrhoea [Recovered/Resolved]

NARRATIVE: CASE EVENT DATE: 20180323
